FAERS Safety Report 5853221-5 (Version None)
Quarter: 2008Q3

REPORT INFORMATION
  Report Type: 
  Country: None (occurrence: None)
  Receive Date: 20080818
  Receipt Date: 20080616
  Transmission Date: 20090109
  Serious: No
  Sender: FDA-Public Use
  Company Number: WAES 0806USA03093

PATIENT
  Sex: Female

DRUGS (4)
  1. JANUVIA [Suspect]
     Indication: DIABETES MELLITUS
     Dosage: 100 MG/DAILY/PO
     Route: 048
     Dates: start: 20080301
  2. AVAPRO [Concomitant]
  3. DYAZIDE [Concomitant]
  4. ZITHROMAX [Concomitant]

REACTIONS (2)
  - EAR DISORDER [None]
  - OTORRHOEA [None]
